FAERS Safety Report 10236264 (Version 2)
Quarter: 2014Q2

REPORT INFORMATION
  Report Type: Spontaneous
  Country: US (occurrence: US)
  Receive Date: 20140613
  Receipt Date: 20140613
  Transmission Date: 20141212
  Serious: Yes (Other)
  Sender: FDA-Public Use
  Company Number: US-ELI_LILLY_AND_COMPANY-US201403008568

PATIENT
  Age: 15 Year
  Sex: Male
  Weight: 79.37 kg

DRUGS (9)
  1. STRATTERA [Suspect]
     Indication: ATTENTION DEFICIT/HYPERACTIVITY DISORDER
     Dosage: 75 MG, EACH MORNING
  2. STRATTERA [Suspect]
     Dosage: 25 MG, QD
     Dates: start: 20090715
  3. STRATTERA [Suspect]
     Dosage: 80 MG, EACH MORNING
     Dates: start: 20130713, end: 20130827
  4. STRATTERA [Suspect]
     Dosage: 60 MG, UNK
     Dates: start: 20130827
  5. STRATTERA [Suspect]
     Dosage: 80 MG, UNK
     Dates: start: 20131029
  6. CONCERTA [Suspect]
     Indication: PRODUCT USED FOR UNKNOWN INDICATION
     Dosage: 18 MG, EACH MORNING
     Dates: start: 20111213, end: 20120202
  7. CONCERTA [Suspect]
     Dosage: 27 MG, EACH MORNING
     Route: 065
     Dates: start: 20120202, end: 2013
  8. FOCALIN XR [Suspect]
     Indication: PRODUCT USED FOR UNKNOWN INDICATION
     Dosage: 5 MG, UNK
     Route: 065
     Dates: start: 20110505, end: 20110516
  9. VYVANSE [Suspect]
     Indication: PRODUCT USED FOR UNKNOWN INDICATION
     Dosage: 20 MG, EACH MORNING
     Route: 065
     Dates: start: 201106, end: 20110818

REACTIONS (1)
  - Hypertension [Recovering/Resolving]
